FAERS Safety Report 8789714 (Version 3)
Quarter: 2013Q3

REPORT INFORMATION
  Report Type: Spontaneous
  Country: GB (occurrence: None)
  Receive Date: 20120906
  Receipt Date: 20130910
  Transmission Date: 20140515
  Serious: Yes (Hospitalization, Other)
  Sender: FDA-Public Use
  Company Number: AUR-APL-2012-03747

PATIENT
  Age: 28 Year
  Sex: Female

DRUGS (2)
  1. RISPERIDONE (RISPERIDONE) [Suspect]
     Indication: SCHIZOPHRENIA
     Route: 048
     Dates: start: 201206
  2. RISPERDAL [Suspect]
     Indication: SCHIZOPHRENIA, PARANOID TYPE
     Dosage: 3.5714 MG (50 MG, 1 IN 2 WK), INTRAMUSCULAR?
     Dates: start: 201205

REACTIONS (17)
  - Aggression [None]
  - Irritability [None]
  - Impaired self-care [None]
  - Social avoidant behaviour [None]
  - Speech disorder [None]
  - Abnormal behaviour [None]
  - Tardive dyskinesia [None]
  - Akathisia [None]
  - Thinking abnormal [None]
  - Restlessness [None]
  - Suicidal ideation [None]
  - Hallucination, auditory [None]
  - Abnormal behaviour [None]
  - Agitation [None]
  - Schizophrenia [None]
  - Suspiciousness [None]
  - Mutism [None]
